FAERS Safety Report 10233873 (Version 1)
Quarter: 2014Q2

REPORT INFORMATION
  Report Type: Spontaneous
  Country: US (occurrence: US)
  Receive Date: 20140612
  Receipt Date: 20140612
  Transmission Date: 20141212
  Serious: No
  Sender: FDA-Public Use
  Company Number: US-TEVA-485212USA

PATIENT
  Sex: Male
  Weight: 77.18 kg

DRUGS (5)
  1. PROAIR HFA [Suspect]
     Indication: BRONCHITIS CHRONIC
     Dosage: 1 TO 2 PUFFS EVERY 4 TO 6 HOURS
  2. ATENOLOL [Concomitant]
     Indication: BLOOD PRESSURE
  3. HYDROCHLOROTHIAZIDE [Concomitant]
  4. ARANESP [Concomitant]
     Indication: RED BLOOD CELL COUNT ABNORMAL
  5. UNSPECIFIED INJECTION [Concomitant]
     Indication: RED BLOOD CELL COUNT DECREASED

REACTIONS (1)
  - Red blood cell count decreased [Not Recovered/Not Resolved]
